FAERS Safety Report 4637531-5 (Version None)
Quarter: 2005Q2

REPORT INFORMATION
  Report Type: 
  Country: None (occurrence: None)
  Receive Date: 20050325
  Receipt Date: 20041220
  Transmission Date: 20051028
  Serious: No
  Sender: FDA-Public Use
  Company Number: USA040464276

PATIENT
  Age: 49 Year
  Sex: Female
  Weight: 60 kg

DRUGS (6)
  1. FORTEO [Suspect]
     Indication: OSTEOPOROSIS
     Dosage: 20 UG IN THE MORNING
     Dates: start: 20040330, end: 20041206
  2. EVISTA [Suspect]
     Dosage: 60 MG DAY
  3. REMERON [Concomitant]
  4. CALCIUM GLUCONATE [Concomitant]
  5. CALCITONIN-SALMON [Concomitant]
  6. ALENDRONATE SODIUM [Concomitant]

REACTIONS (11)
  - ARTHRALGIA [None]
  - BONE DENSITY DECREASED [None]
  - BONE PAIN [None]
  - DECREASED APPETITE [None]
  - HEART RATE INCREASED [None]
  - INJECTION [None]
  - INJECTION SITE PAIN [None]
  - LIMB INJURY [None]
  - NERVOUSNESS [None]
  - PAIN IN EXTREMITY [None]
  - WEIGHT DECREASED [None]
